FAERS Safety Report 11526868 (Version 1)
Quarter: 2015Q3

REPORT INFORMATION
  Report Type: Spontaneous
  Country: US (occurrence: US)
  Receive Date: 20150903
  Receipt Date: 20150903
  Transmission Date: 20151125
  Serious: No
  Sender: FDA-Public Use
  Company Number: US-ELI_LILLY_AND_COMPANY-US201404004023

PATIENT
  Sex: Female

DRUGS (5)
  1. CYMBALTA [Suspect]
     Active Substance: DULOXETINE HYDROCHLORIDE
     Dosage: 30 MG, QD
     Route: 065
  2. TEMAZEPAM. [Concomitant]
     Active Substance: TEMAZEPAM
  3. HYDROCODONE [Concomitant]
     Active Substance: HYDROCODONE
  4. CYMBALTA [Suspect]
     Active Substance: DULOXETINE HYDROCHLORIDE
     Indication: BACK PAIN
     Dosage: 60 MG, QD
     Route: 065
     Dates: start: 2012
  5. LORAZEPAM. [Concomitant]
     Active Substance: LORAZEPAM

REACTIONS (5)
  - Urinary tract infection [Unknown]
  - Asthenia [Unknown]
  - Wrong technique in product usage process [Unknown]
  - Abdominal distension [Unknown]
  - Diarrhoea [Unknown]
